FAERS Safety Report 16920648 (Version 1)
Quarter: 2019Q4

REPORT INFORMATION
  Report Type: Report from Study
  Country: IT (occurrence: IT)
  Receive Date: 20191015
  Receipt Date: 20191015
  Transmission Date: 20200122
  Serious: Yes (Other)
  Sender: FDA-Public Use
  Company Number: IT-JNJFOC-20191010708

PATIENT
  Age: 21 Year
  Sex: Female

DRUGS (1)
  1. STELARA [Suspect]
     Active Substance: USTEKINUMAB
     Indication: CROHN^S DISEASE
     Route: 058
     Dates: start: 20181001, end: 20190924

REACTIONS (1)
  - Vulval abscess [Not Recovered/Not Resolved]

NARRATIVE: CASE EVENT DATE: 20190924
